FAERS Safety Report 5582871-9 (Version None)
Quarter: 2008Q1

REPORT INFORMATION
  Report Type: 
  Country: None (occurrence: None)
  Receive Date: 20080107
  Receipt Date: 20071226
  Transmission Date: 20080703
  Serious: Yes (Life-Threatening, Hospitalization)
  Sender: FDA-Public Use
  Company Number: FR-WYE-H01957708

PATIENT
  Sex: Male

DRUGS (9)
  1. CORDARONE [Suspect]
     Indication: ATRIAL TACHYCARDIA
     Dosage: 11 TABLETS OF 200 MG
     Route: 048
     Dates: start: 20060705, end: 20060705
  2. CORDARONE [Suspect]
     Route: 048
     Dates: start: 20060706
  3. LASILIX [Suspect]
     Dosage: 40 MG TABLET, DOSE AND FREQUENCY UNSPECIFIED
     Route: 048
  4. LASILIX [Suspect]
     Dosage: UNSPECIFIED
     Route: 048
  5. ASPIRIN AND DIPYRIDAMOLE [Concomitant]
     Indication: GASTRIC ULCER
     Dosage: UNSPECIFIED
     Route: 048
     Dates: start: 20060101
  6. LIPANTHYL - SLOW RELEASE [Suspect]
     Dosage: UNSPECIFIED
     Route: 048
  7. PLAVIX [Concomitant]
     Indication: GASTRIC ULCER
     Dosage: UNSPECIFIED
     Route: 048
     Dates: start: 20060101
  8. COKENZEN [Suspect]
     Indication: HYPERTENSION
     Dosage: UNSPECIFIED
     Route: 048
  9. DETENSIEL [Suspect]
     Route: 048

REACTIONS (4)
  - CIRCULATORY COLLAPSE [None]
  - HYPERKALAEMIA [None]
  - RENAL FAILURE ACUTE [None]
  - RESPIRATORY ARREST [None]
